FAERS Safety Report 25059295 (Version 1)
Quarter: 2025Q1

REPORT INFORMATION
  Report Type: Spontaneous
  Country: GB (occurrence: GB)
  Receive Date: 20250310
  Receipt Date: 20250310
  Transmission Date: 20250409
  Serious: Yes (Other)
  Sender: MYLAN
  Company Number: GB-MHRA-TPP58618957C9915078YC1741086951503

PATIENT
  Age: 34 Year
  Sex: Female
  Weight: 52 kg

DRUGS (5)
  1. DOXYCYCLINE [Suspect]
     Active Substance: DOXYCYCLINE
     Indication: Ill-defined disorder
     Dosage: 100 MILLIGRAM, QD (TWO NOW THEN ONE DAILY)
     Dates: start: 20250227
  2. BECONASE AQ [Concomitant]
     Active Substance: BECLOMETHASONE DIPROPIONATE MONOHYDRATE
     Indication: Ill-defined disorder
     Dosage: UNK, BID (ONE TO TWO SPRAYS IN TO EACH NOSTRIL TWICE A DAY)
     Dates: start: 20250304
  3. LORATADINE [Concomitant]
     Active Substance: LORATADINE
     Indication: Ill-defined disorder
     Dosage: 1 DOSAGE FORM, QD (TAKE ONE TABLET ONCE DAILY TO RELIEVE SYMPTOMS)
     Dates: start: 20250304
  4. LORATADINE [Concomitant]
     Active Substance: LORATADINE
     Indication: Symptomatic treatment
  5. PENICILLIN V [Concomitant]
     Active Substance: PENICILLIN V
     Indication: Ill-defined disorder
     Dosage: 2 DOSAGE FORM, QID (TAKE TWO TABLETS FOUR TIMES DAILY FOR 5 DAYS)
     Dates: start: 20250304

REACTIONS (1)
  - Eye swelling [Recovered/Resolved]
